FAERS Safety Report 4744044-9 (Version None)
Quarter: 2005Q3

REPORT INFORMATION
  Report Type: 
  Country: None (occurrence: None)
  Receive Date: 20050812
  Receipt Date: 20050802
  Transmission Date: 20060218
  Serious: Yes (Hospitalization)
  Sender: FDA-Public Use
  Company Number: PHRM2005FR02201

PATIENT
  Age: 68 Year
  Sex: Male

DRUGS (4)
  1. ZOMETA [Suspect]
     Indication: MULTIPLE MYELOMA
     Dosage: 4 MG, QMO
     Route: 042
  2. VINCRISTINE + ADRIAMYCIN + DEXAMETHASONE [Concomitant]
     Indication: MULTIPLE MYELOMA
     Dosage: 4 COURSES
  3. VELCADE [Concomitant]
     Indication: MULTIPLE MYELOMA
  4. RADIOTHERAPY [Concomitant]
     Indication: MULTIPLE MYELOMA

REACTIONS (6)
  - ACTINOMYCOSIS [None]
  - ASEPTIC NECROSIS BONE [None]
  - OSTECTOMY [None]
  - OSTEITIS [None]
  - OSTEOLYSIS [None]
  - TOOTH EXTRACTION [None]
